FAERS Safety Report 23059744 (Version 2)
Quarter: 2023Q4

REPORT INFORMATION
  Report Type: Report from Study
  Country: DE (occurrence: DE)
  Receive Date: 20231012
  Receipt Date: 20231019
  Transmission Date: 20240110
  Serious: Yes (Hospitalization, Other)
  Sender: FDA-Public Use
  Company Number: DE-ABBVIE-5283116

PATIENT
  Sex: Female
  Weight: 65 kg

DRUGS (5)
  1. METHOTREXATE SODIUM [Suspect]
     Active Substance: METHOTREXATE SODIUM
     Indication: Rheumatoid arthritis
     Dosage: UNK
     Route: 065
  2. METHOTREXATE SODIUM [Suspect]
     Active Substance: METHOTREXATE SODIUM
     Indication: Rheumatoid arthritis
     Dosage: UNK
     Dates: start: 2005
  3. HUMIRA [Suspect]
     Active Substance: ADALIMUMAB
     Indication: Rheumatoid arthritis
     Dosage: 40 MG (EVERY 21 DAYS)
     Route: 058
     Dates: start: 20050801, end: 201705
  4. HUMIRA [Suspect]
     Active Substance: ADALIMUMAB
     Dosage: UNK
     Route: 058
     Dates: start: 201801, end: 202209
  5. ERELZI [Concomitant]
     Active Substance: ETANERCEPT-SZZS
     Dosage: UNK
     Dates: start: 202202

REACTIONS (8)
  - Anal fistula [Not Recovered/Not Resolved]
  - Pelvic floor hernia [Not Recovered/Not Resolved]
  - Procedural complication [Not Recovered/Not Resolved]
  - Tumour necrosis [Recovered/Resolved]
  - Device dislocation [Not Recovered/Not Resolved]
  - Drug intolerance [Unknown]
  - Osteoporosis [Not Recovered/Not Resolved]
  - Conjunctivitis [Not Recovered/Not Resolved]

NARRATIVE: CASE EVENT DATE: 20170501
